FAERS Safety Report 9958303 (Version 2)
Quarter: 2014Q1

REPORT INFORMATION
  Report Type: Report from Study
  Country: US (occurrence: US)
  Receive Date: 20140304
  Receipt Date: 20140304
  Transmission Date: 20141002
  Serious: No
  Sender: FDA-Public Use
  Company Number: US-ABBVIE-12P-163-1017967-00

PATIENT
  Age: 48 Year
  Sex: Female

DRUGS (13)
  1. HUMIRA [Suspect]
     Indication: COLITIS ULCERATIVE
     Dosage: LOADING DOSE ONLY
     Route: 058
     Dates: start: 20121204, end: 20121204
  2. HUMIRA [Suspect]
     Route: 058
  3. LOMOTIL [Concomitant]
     Indication: PRODUCT USED FOR UNKNOWN INDICATION
  4. LOMOTIL [Concomitant]
     Dosage: 2 TABLETS TID
  5. ALDACTONE [Concomitant]
     Indication: HYPERTENSION
  6. ACTOS [Concomitant]
     Indication: DIABETES MELLITUS
     Dates: end: 201304
  7. NEXIUM [Concomitant]
     Indication: GASTROOESOPHAGEAL REFLUX DISEASE
     Dates: end: 201305
  8. SINGULAIR [Concomitant]
     Indication: ASTHMA
  9. PAXIL [Concomitant]
     Indication: DEPRESSION
  10. ZOFRAN [Concomitant]
     Indication: NAUSEA
     Dosage: EVERY 8 HOURS AS NEEDED
  11. B-12 [Concomitant]
     Indication: SUPPLEMENTATION THERAPY
  12. MULTIVITAMIN [Concomitant]
     Indication: PRODUCT USED FOR UNKNOWN INDICATION
  13. PRANDIN [Concomitant]
     Indication: PRODUCT USED FOR UNKNOWN INDICATION
     Dates: start: 201304

REACTIONS (4)
  - Arthralgia [Not Recovered/Not Resolved]
  - Drug ineffective [Not Recovered/Not Resolved]
  - Colitis ulcerative [Not Recovered/Not Resolved]
  - Unevaluable event [Not Recovered/Not Resolved]
